FAERS Safety Report 18974307 (Version 6)
Quarter: 2021Q3

REPORT INFORMATION
  Report Type: Report from Study
  Country: BR (occurrence: BR)
  Receive Date: 20210305
  Receipt Date: 20210715
  Transmission Date: 20211014
  Serious: Yes (Other)
  Sender: FDA-Public Use
  Company Number: NVSC2021BR017241

PATIENT
  Age: 83 Year
  Sex: Female

DRUGS (6)
  1. KISQALI [Suspect]
     Active Substance: RIBOCICLIB
     Dosage: 3 DF
     Route: 065
     Dates: end: 202103
  2. KISQALI [Suspect]
     Active Substance: RIBOCICLIB
     Dosage: 2 DF, (STOP FOR 7 DAYS)
     Route: 065
     Dates: start: 20210331
  3. KISQALI [Suspect]
     Active Substance: RIBOCICLIB
     Indication: PRODUCT USED FOR UNKNOWN INDICATION
     Dosage: 3 DF, (STOP FOR 7 DAYS)
     Route: 065
     Dates: start: 20201226, end: 202102
  4. FASLODEX [Concomitant]
     Active Substance: FULVESTRANT
     Indication: PRODUCT USED FOR UNKNOWN INDICATION
     Dosage: UNK, EVERY 28 ADYS
     Route: 065
  5. KISQALI [Suspect]
     Active Substance: RIBOCICLIB
     Dosage: 2 DF
     Route: 065
  6. KISQALI [Suspect]
     Active Substance: RIBOCICLIB
     Dosage: 3 DF
     Route: 065

REACTIONS (25)
  - Malaise [Recovered/Resolved]
  - Tongue disorder [Recovered/Resolved]
  - Sensory disturbance [Recovered/Resolved]
  - Heart rate increased [Recovered/Resolved]
  - Malaise [Unknown]
  - Diarrhoea [Unknown]
  - Erythema [Recovered/Resolved]
  - Rash [Recovered/Resolved]
  - Erythema [Unknown]
  - Immunodeficiency [Recovered/Resolved]
  - Tongue disorder [Not Recovered/Not Resolved]
  - Sluggishness [Not Recovered/Not Resolved]
  - Lethargy [Recovered/Resolved]
  - Stomatitis [Recovered/Resolved]
  - Dry skin [Recovered/Resolved]
  - Sluggishness [Recovered/Resolved]
  - Tumour marker increased [Unknown]
  - Pruritus [Recovered/Resolved]
  - Laziness [Recovered/Resolved]
  - Illness [Recovered/Resolved]
  - Illness [Recovered/Resolved]
  - Intestinal obstruction [Unknown]
  - Malaise [Recovered/Resolved]
  - Ageusia [Recovered/Resolved]
  - Feeding disorder [Unknown]

NARRATIVE: CASE EVENT DATE: 20201226
